FAERS Safety Report 18506941 (Version 1)
Quarter: 2020Q4

REPORT INFORMATION
  Report Type: Spontaneous
  Country: US (occurrence: US)
  Receive Date: 20201114
  Receipt Date: 20201114
  Transmission Date: 20210114
  Serious: Yes (Other)
  Sender: FDA-Public Use
  Company Number: None

PATIENT
  Age: 72 Year
  Sex: Female

DRUGS (14)
  1. ELEQUIS [Concomitant]
  2. PROTONIX [Concomitant]
     Active Substance: PANTOPRAZOLE SODIUM
  3. CALCIUM [Concomitant]
     Active Substance: CALCIUM
  4. SYNTHROID [Concomitant]
     Active Substance: LEVOTHYROXINE SODIUM
  5. FAMOTIDINE. [Concomitant]
     Active Substance: FAMOTIDINE
  6. SYMBICORT [Concomitant]
     Active Substance: BUDESONIDE\FORMOTEROL FUMARATE DIHYDRATE
  7. PROBIOTICS [Concomitant]
     Active Substance: PROBIOTICS NOS
  8. VIT. D [Concomitant]
     Active Substance: VITAMIN D NOS
  9. EVENITY [Suspect]
     Active Substance: ROMOSOZUMAB-AQQG
     Indication: BONE DISORDER
     Dosage: ?          QUANTITY:2 INJECTION(S);OTHER FREQUENCY:MONTHLY;?
     Route: 058
     Dates: start: 20200301
  10. GABAPENTIN. [Concomitant]
     Active Substance: GABAPENTIN
  11. MELATONIN [Concomitant]
     Active Substance: MELATONIN
  12. LOPRESSOR [Concomitant]
     Active Substance: METOPROLOL TARTRATE
  13. DILTIAZEM. [Concomitant]
     Active Substance: DILTIAZEM
  14. OMEGA 3 [Concomitant]
     Active Substance: OMEGA-3 FATTY ACIDS

REACTIONS (3)
  - Tooth loss [None]
  - Temporomandibular joint syndrome [None]
  - Headache [None]

NARRATIVE: CASE EVENT DATE: 20201111
